FAERS Safety Report 9288773 (Version 1)
Quarter: 2013Q2

REPORT INFORMATION
  Report Type: Spontaneous
  Country: US (occurrence: US)
  Receive Date: 20130514
  Receipt Date: 20130514
  Transmission Date: 20140414
  Serious: No
  Sender: FDA-Public Use
  Company Number: US-ASTRAZENECA-2013SE28883

PATIENT
  Age: 36 Year
  Sex: Female
  Weight: 114.3 kg

DRUGS (4)
  1. LISINOPRIL [Suspect]
     Route: 048
  2. AMITRIPTYLINE [Concomitant]
     Indication: MIGRAINE
  3. ALPRAZOLAM [Concomitant]
  4. VILAZODONE [Concomitant]

REACTIONS (5)
  - Migraine [Unknown]
  - Hypertension [Unknown]
  - Anxiety [Unknown]
  - Herpes zoster [Unknown]
  - Neuralgia [Unknown]
